FAERS Safety Report 8723341 (Version 2)
Quarter: 2012Q4

REPORT INFORMATION
  Report Type: 
  Country: US (occurrence: US)
  Receive Date: 20120814
  Receipt Date: 20121015
  Transmission Date: 20130627
  Serious: Yes (Other)
  Sender: FDA-Public Use
  Company Number: US-ASTRAZENECA-2012SE53852

PATIENT
  Age: 54 Year
  Sex: Female
  Weight: 77 kg

DRUGS (17)
  1. SEROQUEL [Suspect]
     Indication: DEPRESSION
     Route: 048
     Dates: start: 2005, end: 2007
  2. SEROQUEL [Suspect]
     Indication: BIPOLAR DISORDER
     Route: 048
     Dates: start: 2005, end: 2007
  3. SEROQUEL [Suspect]
     Indication: DEPRESSION
     Route: 048
     Dates: start: 2007, end: 2007
  4. SEROQUEL [Suspect]
     Indication: BIPOLAR DISORDER
     Route: 048
     Dates: start: 2007, end: 2007
  5. SEROQUEL [Suspect]
     Indication: DEPRESSION
     Route: 048
     Dates: start: 2007
  6. SEROQUEL [Suspect]
     Indication: BIPOLAR DISORDER
     Route: 048
     Dates: start: 2007
  7. GLUCOPHAGE [Concomitant]
     Indication: GLUCOSE TOLERANCE IMPAIRED
     Dosage: BID
     Dates: start: 20120712
  8. DEXTROAMPHETAMINE [Concomitant]
     Indication: ILL-DEFINED DISORDER
     Route: 048
     Dates: start: 2005
  9. HALDOL [Concomitant]
     Indication: AFFECTIVE DISORDER
     Route: 048
  10. CALCIUM [Concomitant]
     Indication: BLOOD CALCIUM DECREASED
     Route: 048
  11. BABY ASPIRIN [Concomitant]
     Indication: CARDIOVASCULAR EVENT PROPHYLAXIS
     Route: 048
  12. STOOL SOFTNER [Concomitant]
  13. FIBER [Concomitant]
     Indication: MEDICAL DIET
  14. MULTIVITAMIN [Concomitant]
     Indication: MEDICAL DIET
     Route: 048
  15. VITAMIN D [Concomitant]
     Indication: MEDICAL DIET
     Route: 048
  16. FISH OIL [Concomitant]
     Indication: MEDICAL DIET
     Route: 048
  17. CINNAMON [Concomitant]
     Indication: BODY FAT DISORDER
     Route: 048

REACTIONS (11)
  - Blood glucose increased [Unknown]
  - Blood triglycerides increased [Not Recovered/Not Resolved]
  - Weight increased [Recovering/Resolving]
  - Adverse event [Unknown]
  - Blood calcium decreased [Unknown]
  - Palpitations [Recovered/Resolved]
  - Dyspnoea [Recovered/Resolved]
  - Hyperglycaemia [Unknown]
  - Sedation [Unknown]
  - Blood pressure decreased [Recovered/Resolved]
  - Drug effect decreased [Unknown]
